FAERS Safety Report 8258347-7 (Version None)
Quarter: 2012Q1

REPORT INFORMATION
  Report Type: 
  Country: None (occurrence: None)
  Receive Date: 20120322
  Receipt Date: 20120124
  Transmission Date: 20120608
  Serious: Yes (Hospitalization)
  Sender: FDA-Public Use
  Company Number: UTC-014954

PATIENT
  Age: 87 Year
  Sex: Male
  Weight: 77.73 kg

DRUGS (2)
  1. LETAIRIS [Concomitant]
  2. TYVASO [Suspect]
     Indication: PULMONARY ARTERIAL HYPERTENSION
     Dosage: 18-72 MICROGRAMS, (4 IN 1 D), INHALATION
     Route: 055
     Dates: start: 20091202

REACTIONS (2)
  - RASH PRURITIC [None]
  - DYSPNOEA [None]
